FAERS Safety Report 18719376 (Version 1)
Quarter: 2021Q1

REPORT INFORMATION
  Report Type: Spontaneous
  Country: FR (occurrence: FR)
  Receive Date: 20210108
  Receipt Date: 20210108
  Transmission Date: 20210419
  Serious: Yes (Death)
  Sender: FDA-Public Use
  Company Number: FR-TEVA-2021-FR-1866253

PATIENT
  Age: 28 Year
  Sex: Male

DRUGS (1)
  1. TRAMADOL BASE [Suspect]
     Active Substance: TRAMADOL
     Route: 065

REACTIONS (3)
  - Drug use disorder [Fatal]
  - Intentional overdose [Fatal]
  - Hanging [Fatal]

NARRATIVE: CASE EVENT DATE: 20191103
